FAERS Safety Report 11945322 (Version 1)
Quarter: 2016Q1

REPORT INFORMATION
  Report Type: Report from Study
  Country: US (occurrence: US)
  Receive Date: 20160125
  Receipt Date: 20160125
  Transmission Date: 20160526
  Serious: Yes (Death, Life-Threatening, Hospitalization)
  Sender: FDA-Public Use
  Company Number: US-PFIZER INC-2010039978

PATIENT
  Age: 57 Year
  Sex: Female
  Weight: 58.6 kg

DRUGS (8)
  1. DEXAMETHASONE. [Suspect]
     Active Substance: DEXAMETHASONE
     Indication: PLASMA CELL MYELOMA
     Dosage: 20 MG, EVERY 3 WEEKS, DAY 8, 11, 15, 18
     Route: 048
     Dates: start: 20100329, end: 20100329
  2. PALBOCICLIB [Suspect]
     Active Substance: PALBOCICLIB
     Dosage: 125 MG, DAILY, 12 DAYS ON/9 DAYS OFF
     Route: 048
     Dates: start: 20100330, end: 20100331
  3. BORTEZOMIB [Suspect]
     Active Substance: BORTEZOMIB
     Indication: PLASMA CELL MYELOMA
     Dosage: 1.6 MG, EVERY 3 WEEKS, DAY 8, 11, 15, 18
     Route: 042
     Dates: start: 20100329, end: 20100329
  4. TYLENOL [Concomitant]
     Active Substance: ACETAMINOPHEN
     Indication: PAIN
     Dosage: 1 TABLET, 1X/DAY
     Route: 048
     Dates: start: 20091027
  5. PALBOCICLIB [Suspect]
     Active Substance: PALBOCICLIB
     Indication: PLASMA CELL MYELOMA
     Dosage: 125 MG, DAILY, 12 DAYS ON/9 DAYS OFF
     Route: 048
     Dates: start: 20100322, end: 20100329
  6. SYNTHROID [Concomitant]
     Active Substance: LEVOTHYROXINE SODIUM
     Indication: HYPOTHYROIDISM
     Dosage: 0.2 MG, 1X/DAY
     Route: 048
     Dates: start: 2008
  7. VALTREX [Concomitant]
     Active Substance: VALACYCLOVIR HYDROCHLORIDE
     Indication: PROPHYLAXIS
     Dosage: 1 TABLET, 1X/DAY
     Route: 048
     Dates: start: 2008
  8. FERROUS GLUCONATE [Concomitant]
     Active Substance: FERROUS GLUCONATE
     Indication: SUPPLEMENTATION THERAPY
     Dosage: 325 MG, 1X/DAY
     Route: 048
     Dates: start: 2008

REACTIONS (4)
  - Blood creatinine increased [Recovered/Resolved]
  - Thrombocytopenia [Recovering/Resolving]
  - Sepsis [Fatal]
  - Metabolic acidosis [Recovered/Resolved]

NARRATIVE: CASE EVENT DATE: 20100329
